FAERS Safety Report 17125855 (Version 1)
Quarter: 2019Q4

REPORT INFORMATION
  Report Type: Report from Study
  Country: None (occurrence: PT)
  Receive Date: 20191208
  Receipt Date: 20191208
  Transmission Date: 20200122
  Serious: Yes (Other)
  Sender: FDA-Public Use
  Company Number: PT-ABBVIE-19K-130-3180467-00

PATIENT
  Sex: Female

DRUGS (2)
  1. HUMIRA [Suspect]
     Active Substance: ADALIMUMAB
     Indication: ANKYLOSING SPONDYLITIS
     Route: 058
     Dates: start: 20181115, end: 201902
  2. SEROTONIN [Concomitant]
     Active Substance: SEROTONIN
     Indication: DEPRESSION
     Route: 048

REACTIONS (2)
  - Therapeutic product effect incomplete [Unknown]
  - Weight increased [Recovered/Resolved]
